FAERS Safety Report 8129754-8 (Version None)
Quarter: 2012Q1

REPORT INFORMATION
  Report Type: 
  Country: None (occurrence: None)
  Receive Date: 20120210
  Receipt Date: 20120203
  Transmission Date: 20120608
  Serious: No
  Sender: FDA-Public Use
  Company Number: US-BAYER-2012-012128

PATIENT
  Age: 24 Year
  Sex: Female

DRUGS (1)
  1. GADAVIST [Suspect]
     Indication: NUCLEAR MAGNETIC RESONANCE IMAGING BRAIN
     Dosage: 6 ML, ONCE
     Dates: start: 20120131, end: 20120131

REACTIONS (4)
  - FEELING HOT [None]
  - RASH MACULAR [None]
  - HYPERHIDROSIS [None]
  - ABDOMINAL PAIN UPPER [None]
